FAERS Safety Report 8362568-2 (Version None)
Quarter: 2012Q2

REPORT INFORMATION
  Report Type: 
  Country: None (occurrence: None)
  Receive Date: 20120514
  Receipt Date: 20120503
  Transmission Date: 20120825
  Serious: Yes (Other)
  Sender: FDA-Public Use
  Company Number: AUR-APL-2012-02101

PATIENT
  Age: 50 Year
  Sex: Female

DRUGS (8)
  1. CITALOPRAM HYDROBROMIDE [Suspect]
     Indication: ANXIETY
     Dosage: (20 MG), ORAL
     Route: 048
     Dates: start: 20120403, end: 20120403
  2. ELLESTE DUET (OESTRANORM) [Concomitant]
  3. OMEPRAZOLE [Concomitant]
  4. BECLOMETHASONE DIPROPIONATE [Concomitant]
  5. TEGRETOL [Concomitant]
  6. ALVERINE CITRATE (ALVERINE CITRATE) [Concomitant]
  7. BUSPIRONE HCL [Concomitant]
  8. ACETAMINOPHEN W/ CODEINE [Concomitant]

REACTIONS (2)
  - MUSCLE RIGIDITY [None]
  - VOMITING [None]
